FAERS Safety Report 24663291 (Version 1)
Quarter: 2024Q4

REPORT INFORMATION
  Report Type: Spontaneous
  Country: CA (occurrence: CA)
  Receive Date: 20241126
  Receipt Date: 20241126
  Transmission Date: 20250115
  Serious: Yes (Other)
  Sender: CSL BEHRING
  Company Number: CA-BEH-2024186025

PATIENT
  Age: 29 Year
  Sex: Female

DRUGS (1)
  1. HUMAN C1-ESTERASE INHIBITOR [Suspect]
     Active Substance: HUMAN C1-ESTERASE INHIBITOR
     Indication: Hereditary angioedema
     Dosage: 1500 IU, BIW
     Route: 058

REACTIONS (4)
  - Food allergy [Unknown]
  - Hereditary angioedema [Unknown]
  - Incorrect route of product administration [Unknown]
  - Prescribed overdose [Unknown]
